FAERS Safety Report 9483457 (Version 1)
Quarter: 2013Q3

REPORT INFORMATION
  Report Type: Spontaneous
  Country: TW (occurrence: TW)
  Receive Date: 20130828
  Receipt Date: 20130828
  Transmission Date: 20140515
  Serious: Yes (Other)
  Sender: FDA-Public Use
  Company Number: TW-ABBOTT-13P-153-1138543-00

PATIENT
  Age: 54 Year
  Sex: Male

DRUGS (5)
  1. LEUPROLIDE ACETATE DEPOT [Suspect]
     Indication: PROSTATE CANCER
  2. PAROXETINE [Concomitant]
     Indication: MAJOR DEPRESSION
     Dosage: 40 MG DAILY
  3. LORAZEPAM [Concomitant]
     Indication: MAJOR DEPRESSION
  4. ZOLPIDEM [Concomitant]
     Indication: MAJOR DEPRESSION
     Dosage: AT NIGHT
  5. DULOXETINE [Concomitant]
     Indication: DEPRESSED MOOD
     Dosage: 120 MG DAILY

REACTIONS (1)
  - Extrapyramidal disorder [Recovering/Resolving]
